FAERS Safety Report 4979971-0 (Version None)
Quarter: 2006Q2

REPORT INFORMATION
  Report Type: 
  Country: None (occurrence: None)
  Receive Date: 20060421
  Receipt Date: 20051020
  Transmission Date: 20061013
  Serious: Yes (Hospitalization, Disabling)
  Sender: FDA-Public Use
  Company Number: US-MERCK-0510USA08414

PATIENT
  Age: 57 Year
  Sex: Male
  Weight: 102 kg

DRUGS (2)
  1. VIOXX [Suspect]
     Indication: PAIN IN EXTREMITY
     Route: 048
     Dates: start: 19991117, end: 20040930
  2. VIOXX [Suspect]
     Indication: ARTHRALGIA
     Route: 048
     Dates: start: 19991117, end: 20040930

REACTIONS (24)
  - ABSCESS [None]
  - ANASTOMOTIC STENOSIS [None]
  - ARTHROPATHY [None]
  - ASTHENIA [None]
  - ATELECTASIS [None]
  - CEREBRAL INFARCTION [None]
  - CEREBROVASCULAR ACCIDENT [None]
  - CLOSTRIDIAL INFECTION [None]
  - DIVERTICULITIS [None]
  - DYSPNOEA [None]
  - FLANK PAIN [None]
  - HEMIPARESIS [None]
  - HYPERTENSION [None]
  - HYPOAESTHESIA [None]
  - INTESTINAL PERFORATION [None]
  - JOINT EFFUSION [None]
  - JOINT INJURY [None]
  - LIMB INJURY [None]
  - POSTOPERATIVE ABSCESS [None]
  - RADICULAR SYNDROME [None]
  - RESPIRATORY FAILURE [None]
  - SPINAL OSTEOARTHRITIS [None]
  - VERTIGO [None]
  - WEIGHT DECREASED [None]
